FAERS Safety Report 19582378 (Version 1)
Quarter: 2021Q3

REPORT INFORMATION
  Report Type: Spontaneous
  Country: JP (occurrence: JP)
  Receive Date: 20210720
  Receipt Date: 20210720
  Transmission Date: 20211014
  Serious: Yes (Hospitalization)
  Sender: FDA-Public Use
  Company Number: JP-BIODELIVERY SCIENCES INTERNATIONAL-E2B_00001338

PATIENT
  Age: 44 Year
  Sex: Male
  Weight: 56 kg

DRUGS (12)
  1. DEXAMETHASONE. [Concomitant]
     Active Substance: DEXAMETHASONE
     Indication: CHEMOTHERAPY SIDE EFFECT PROPHYLAXIS
     Dosage: UNKNOWN, UNKNOWN
     Route: 065
  2. IRINOTECAN SUCROSOFATE PEGYLATED LIPOSOMAL [Suspect]
     Active Substance: IRINOTECAN SUCROSOFATE
     Indication: PANCREATIC CARCINOMA
     Dosage: 63 MG/M2, QD
     Route: 065
     Dates: start: 20210610, end: 20210610
  3. NALDEMEDINE [Suspect]
     Active Substance: NALDEMEDINE
     Indication: PRODUCT USED FOR UNKNOWN INDICATION
     Dosage: UNKNOWN, UNKNOWN
     Route: 048
  4. PALONOSETRON HYDROCHLORIDE. [Concomitant]
     Active Substance: PALONOSETRON HYDROCHLORIDE
     Indication: CHEMOTHERAPY SIDE EFFECT PROPHYLAXIS
     Dosage: UNKNOWN, UNKNOWN
     Route: 065
  5. LUBIPROSTONE [Suspect]
     Active Substance: LUBIPROSTONE
     Indication: PRODUCT USED FOR UNKNOWN INDICATION
     Dosage: UNKNOWN, UNKNOWN
     Route: 048
  6. MAGNESIUM OXIDE. [Suspect]
     Active Substance: MAGNESIUM OXIDE
     Indication: PRODUCT USED FOR UNKNOWN INDICATION
     Dosage: UNKNOWN, UNKNOWN
     Route: 048
  7. IRINOTECAN SUCROSOFATE PEGYLATED LIPOSOMAL [Suspect]
     Active Substance: IRINOTECAN SUCROSOFATE
     Dosage: 63 MG/M2, QD
     Route: 065
     Dates: start: 20210624
  8. HYOSCINE BUTYLBROMIDE [Concomitant]
     Active Substance: BUTYLSCOPOLAMINE BROMIDE
     Indication: CHEMOTHERAPY SIDE EFFECT PROPHYLAXIS
     Dosage: UNKNOWN, UNKNOWN
     Route: 065
  9. CALCIUM LEVOFOLINATE [Concomitant]
     Active Substance: LEVOLEUCOVORIN CALCIUM
     Dosage: 200 MG/M2, QD
     Route: 065
     Dates: start: 20210624
  10. FLUOROURACIL. [Concomitant]
     Active Substance: FLUOROURACIL
     Dosage: 2160 MG/M2, QD
     Route: 065
     Dates: start: 20210624
  11. CALCIUM LEVOFOLINATE [Concomitant]
     Active Substance: LEVOLEUCOVORIN CALCIUM
     Indication: PANCREATIC CARCINOMA
     Dosage: 200 MG/M2, QD
     Route: 065
     Dates: start: 20210610, end: 20210610
  12. FLUOROURACIL. [Concomitant]
     Active Substance: FLUOROURACIL
     Indication: PANCREATIC CARCINOMA
     Dosage: 2160 MG/M2, QD
     Route: 065
     Dates: start: 20210610, end: 20210610

REACTIONS (2)
  - Diarrhoea [Recovered/Resolved]
  - Pulmonary artery thrombosis [Recovering/Resolving]

NARRATIVE: CASE EVENT DATE: 20210610
